FAERS Safety Report 15859999 (Version 1)
Quarter: 2019Q1

REPORT INFORMATION
  Report Type: Spontaneous
  Country: DE (occurrence: DE)
  Receive Date: 20190123
  Receipt Date: 20190123
  Transmission Date: 20190417
  Serious: Yes (Hospitalization)
  Sender: FDA-Public Use
  Company Number: DE-MYLANLABS-2019M1005578

PATIENT
  Age: 82 Year
  Sex: Female
  Weight: 65 kg

DRUGS (8)
  1. VASERETIC [Suspect]
     Active Substance: ENALAPRIL MALEATE\HYDROCHLOROTHIAZIDE
     Indication: PRODUCT USED FOR UNKNOWN INDICATION
     Dosage: UNK UNK, QD (5 X 10MG/25MG, ONCE)
     Route: 048
     Dates: start: 20090713, end: 20090713
  2. CORVO HCT [Suspect]
     Active Substance: ENALAPRIL MALEATE\HYDROCHLOROTHIAZIDE
     Indication: PRODUCT USED FOR UNKNOWN INDICATION
     Dosage: 5 DOSAGE FORM, QD (DAILY DOSE: 5 DF DOSAGE FORM EVERY DAY. 5 X 10/25 MG)
     Route: 048
     Dates: start: 20090713, end: 20090713
  3. TEBONINA FORTE [Suspect]
     Active Substance: GINKGO
     Indication: PRODUCT USED FOR UNKNOWN INDICATION
     Dosage: 600 MILLIGRAM, QD (DAILY DOSE: 600 MG MILLIGRAM(S) EVERY DAY. DAILY DOSE: 15 DF DOSAGE FORM EVERY)
     Route: 048
     Dates: start: 20090713, end: 20090713
  4. MOLSIDOMIN [Suspect]
     Active Substance: MOLSIDOMINE
     Indication: PRODUCT USED FOR UNKNOWN INDICATION
     Dosage: 40 MILLIGRAM, QD (DAILY DOSE: 40 MG MILLIGRAM(S) EVERY DAY. 5X8 MG, SINGLE)
     Route: 048
     Dates: start: 20090713, end: 20090713
  5. SOLVEX /01350602/ [Suspect]
     Active Substance: REBOXETINE MESYLATE
     Indication: PRODUCT USED FOR UNKNOWN INDICATION
     Dosage: 20 MILLIGRAM, QD (DAILY DOSE: 20 MG MILLIGRAM(S) EVERY DAY. DAILY DOSE: 5 DF DOSAGE FORM EVERY)
     Route: 048
     Dates: start: 20090713, end: 20090713
  6. OLMETEC [Suspect]
     Active Substance: OLMESARTAN MEDOXOMIL
     Indication: PRODUCT USED FOR UNKNOWN INDICATION
     Dosage: 100 MILLIGRAM, QD (DAILY DOSE: 100 MG MILLIGRAM(S) EVERY DAY)
     Route: 048
     Dates: start: 20090713, end: 20090713
  7. METOPROLOL. [Suspect]
     Active Substance: METOPROLOL
     Indication: PRODUCT USED FOR UNKNOWN INDICATION
     Dosage: 500 MILLIGRAM, QD (DAILY DOSE: 500 MG MILLIGRAM(S) EVERY DAY. 10X50 MG, ONCE)
     Route: 048
     Dates: start: 20090713, end: 20090713
  8. ISOSORBIDE MONONITRATE. [Suspect]
     Active Substance: ISOSORBIDE MONONITRATE
     Indication: PRODUCT USED FOR UNKNOWN INDICATION
     Dosage: 5 DOSAGE FORM, QD (DAILY DOSE: 5 DF DOSAGE FORM EVERY DAY)
     Route: 048
     Dates: start: 20090713, end: 20090713

REACTIONS (4)
  - Suicide attempt [Recovered/Resolved]
  - Intentional overdose [Recovered/Resolved]
  - Atrioventricular block first degree [Recovered/Resolved]
  - Bradycardia [Recovered/Resolved]

NARRATIVE: CASE EVENT DATE: 20090713
